FAERS Safety Report 24300512 (Version 3)
Quarter: 2024Q4

REPORT INFORMATION
  Report Type: Spontaneous
  Country: US (occurrence: US)
  Receive Date: 20240910
  Receipt Date: 20241018
  Transmission Date: 20250114
  Serious: No
  Sender: BOEHRINGER INGELHEIM
  Company Number: US-Komodo Health-a23aa0000033uS9AAI

PATIENT
  Age: 73 Year
  Sex: Male

DRUGS (2)
  1. SPIRIVA RESPIMAT [Suspect]
     Active Substance: TIOTROPIUM BROMIDE
     Indication: Chronic obstructive pulmonary disease
     Dosage: 2 PUFFS A DAY
  2. ALBUTEROL [Concomitant]
     Active Substance: ALBUTEROL
     Indication: Product used for unknown indication
     Dosage: USE OCCASIONALLY MAYBE ONCE A DAY

REACTIONS (2)
  - Dyspnoea [Not Recovered/Not Resolved]
  - Product taste abnormal [Unknown]
